FAERS Safety Report 23803793 (Version 1)
Quarter: 2024Q2

REPORT INFORMATION
  Report Type: Spontaneous
  Country: US (occurrence: None)
  Receive Date: 20240430
  Receipt Date: 20240430
  Transmission Date: 20240716
  Serious: Yes (Other)
  Sender: FDA-Public Use
  Company Number: None

PATIENT
  Age: 65 Year
  Sex: Female
  Weight: 71.1 kg

DRUGS (2)
  1. ZOLEDRONIC ACID [Suspect]
     Active Substance: ZOLEDRONIC ACID
  2. VITAMIN D [Concomitant]
     Active Substance: VITAMIN D NOS

REACTIONS (10)
  - Pyrexia [None]
  - Chills [None]
  - Pain [None]
  - Back pain [None]
  - Gait disturbance [None]
  - Fatigue [None]
  - Neck pain [None]
  - Musculoskeletal stiffness [None]
  - Fear [None]
  - Impaired driving ability [None]

NARRATIVE: CASE EVENT DATE: 20240308
